FAERS Safety Report 7358066-5 (Version None)
Quarter: 2011Q1

REPORT INFORMATION
  Report Type: 
  Country: None (occurrence: None)
  Receive Date: 20110317
  Receipt Date: 20110303
  Transmission Date: 20110831
  Serious: Yes (Other)
  Sender: FDA-Public Use
  Company Number: PHHY2011DE18042

PATIENT
  Age: 51 Year
  Sex: Male

DRUGS (2)
  1. MYCOPHENOLIC ACID [Suspect]
     Indication: RENAL TRANSPLANT
     Route: 048
  2. PROGRAF [Concomitant]
     Dosage: UNK
     Dates: start: 20090114

REACTIONS (1)
  - IMMUNOSUPPRESSANT DRUG LEVEL INCREASED [None]
